FAERS Safety Report 6591015-6 (Version None)
Quarter: 2010Q1

REPORT INFORMATION
  Report Type: 
  Country: None (occurrence: None)
  Receive Date: 20100219
  Receipt Date: 20100210
  Transmission Date: 20100710
  Serious: Yes (Hospitalization, Other)
  Sender: FDA-Public Use
  Company Number: CA-ABBOTT-10P-028-0625857-00

PATIENT
  Sex: Male

DRUGS (11)
  1. LUPRON DEPOT [Suspect]
     Indication: PROSTATE CANCER
     Dates: start: 20040127
  2. ZOCOR [Concomitant]
     Indication: DRUG USE FOR UNKNOWN INDICATION
  3. METFORMIN HCL [Concomitant]
     Indication: DRUG USE FOR UNKNOWN INDICATION
     Dosage: 500M 1/2 CO BID
  4. METOROPOLOL [Concomitant]
     Indication: DRUG USE FOR UNKNOWN INDICATION
     Dosage: 1/2 CO 50MG BID
  5. MULTI VIT [Concomitant]
     Indication: DRUG USE FOR UNKNOWN INDICATION
  6. CALCIUM VIT D [Concomitant]
     Indication: DRUG USE FOR UNKNOWN INDICATION
  7. LOVAZA [Concomitant]
     Indication: DRUG USE FOR UNKNOWN INDICATION
  8. FLAXSEED OIL [Concomitant]
     Indication: DRUG USE FOR UNKNOWN INDICATION
  9. ZINC [Concomitant]
     Indication: DRUG USE FOR UNKNOWN INDICATION
  10. CONJUGATED LINOLEIC ACID ANTIOXYDANT, LYCOPENE, ZOMETA [Concomitant]
     Indication: DRUG USE FOR UNKNOWN INDICATION
  11. GENERAL ANESTHEISA [Concomitant]
     Indication: TRANSURETHRAL BLADDER RESECTION
     Dates: start: 20091217

REACTIONS (5)
  - CENTRAL VENOUS CATHETERISATION [None]
  - COUGH [None]
  - NAUSEA [None]
  - TRANSURETHRAL BLADDER RESECTION [None]
  - TRANSURETHRAL PROSTATECTOMY [None]
